FAERS Safety Report 9730841 (Version 5)
Quarter: 2018Q2

REPORT INFORMATION
  Report Type: Spontaneous
  Country: JP (occurrence: JP)
  Receive Date: 20131203
  Receipt Date: 20180414
  Transmission Date: 20180711
  Serious: Yes (Life-Threatening, Other)
  Sender: FDA-Public Use
  Company Number: JP-ROCHE-1309106

PATIENT
  Age: 54 Year
  Sex: Female
  Weight: 41 kg

DRUGS (9)
  1. PACLITAXEL. [Suspect]
     Active Substance: PACLITAXEL
     Indication: BREAST CANCER METASTATIC
     Dosage: (90 MG/M2 BASED ON BODY SURFACE AREA [114 MG]) EVERY WEEK FOR 3 WEEKS FOLLOWED BY 1 WEEK FOR REST
     Route: 041
     Dates: start: 20110701, end: 201111
  2. DECADRON [Concomitant]
     Active Substance: DEXAMETHASONE
     Dosage: AT CHEMOTHERAPY.
     Route: 065
     Dates: end: 2011
  3. AVASTIN [Suspect]
     Active Substance: BEVACIZUMAB
     Route: 041
     Dates: start: 20111212, end: 20111226
  4. PACLITAXEL. [Suspect]
     Active Substance: PACLITAXEL
     Dosage: SECOND-LINE TREATMENT, (90 MG/M2 BASED ON BODY SURFACE AREA [114 MG]) EVERY WEEK FOR 3 WEEKS FOLLOWE
     Route: 041
     Dates: start: 20111114, end: 201201
  5. CALONAL [Concomitant]
     Active Substance: ACETAMINOPHEN
     Indication: PAIN
     Dosage: DOSAGE IS UNCERTAIN.
     Route: 048
     Dates: start: 20111222, end: 20111222
  6. CALONAL [Concomitant]
     Active Substance: ACETAMINOPHEN
     Indication: PAIN
     Dosage: DOSAGE IS UNCERTAIN.
     Route: 048
     Dates: start: 20111219, end: 20111219
  7. AVASTIN [Suspect]
     Active Substance: BEVACIZUMAB
     Indication: BREAST CANCER METASTATIC
     Dosage: ON WEEKS 1 AND 3 OF EVERY CYCLE.
     Route: 041
     Dates: start: 20111114, end: 20111128
  8. CALONAL [Concomitant]
     Active Substance: ACETAMINOPHEN
     Indication: PAIN
     Dosage: DOSAGE IS UNCERTAIN.
     Route: 048
     Dates: start: 20120106, end: 20120106
  9. CALONAL [Concomitant]
     Active Substance: ACETAMINOPHEN
     Indication: PAIN
     Dosage: DOSAGE IS UNCERTAIN.
     Route: 048
     Dates: start: 20111205, end: 20111205

REACTIONS (3)
  - Gastrointestinal perforation [Recovering/Resolving]
  - Septic shock [Recovering/Resolving]
  - Disseminated intravascular coagulation [Unknown]

NARRATIVE: CASE EVENT DATE: 20120106
